FAERS Safety Report 8114535 (Version 2)
Quarter: 2013Q4

REPORT INFORMATION
  Report Type: Report from Study
  Country: BR (occurrence: BR)
  Receive Date: 20110831
  Receipt Date: 20131212
  Transmission Date: 20140711
  Serious: Yes (Hospitalization)
  Sender: FDA-Public Use
  Company Number: PHHY2011BR73133

PATIENT
  Sex: Male

DRUGS (10)
  1. DIOVAN AMLO FIX [Suspect]
     Indication: HYPERTENSION
     Dosage: O1 DF (160/5 MG), QD MORNING
     Route: 048
  2. PURAN T4 [Concomitant]
     Indication: THYROID DISORDER
     Dosage: 112 MGC TO 25 MCG
  3. LASIX [Concomitant]
     Indication: RENAL FAILURE
     Dosage: 40 MG, UNK
  4. NOVOLIN [Concomitant]
     Dosage: 30 ML, UNK
  5. HUMALOG [Concomitant]
     Dosage: 150 ML, UNK
  6. NOVOMIX 30 [Concomitant]
     Dosage: 12 ML, UNK
  7. ALLOPURINOL [Concomitant]
     Indication: RENAL DISORDER
     Dosage: 300 MG, UNK
  8. LUDIOMIL//MAPROTILINE HYDROCHLORIDE [Concomitant]
     Indication: DEPRESSION
     Dosage: 25 MG, UNK
  9. ACETYLSALICYLIC ACID [Concomitant]
     Indication: ANTICOAGULANT THERAPY
     Dosage: 100 MG, UNK
  10. ANCORON [Concomitant]
     Indication: ARRHYTHMIA
     Dosage: 200 MG, UNK

REACTIONS (6)
  - Renal failure [Recovered/Resolved]
  - Diabetes mellitus [Recovered/Resolved]
  - Hypertension [Recovered/Resolved]
  - Malaise [Recovered/Resolved]
  - Spinal deformity [Unknown]
  - Swelling [Unknown]
